FAERS Safety Report 8982671 (Version 1)
Quarter: 2012Q4

REPORT INFORMATION
  Report Type: 
  Country: VE (occurrence: VE)
  Receive Date: 20121224
  Receipt Date: 20121224
  Transmission Date: 20130627
  Serious: Yes (Hospitalization)
  Sender: FDA-Public Use
  Company Number: VE-ROCHE-1173710

PATIENT
  Age: 53 Year
  Sex: Female
  Weight: 53 kg

DRUGS (1)
  1. BEVACIZUMAB [Suspect]
     Indication: BREAST CANCER
     Route: 042
     Dates: start: 20121126

REACTIONS (5)
  - Hypertension [Unknown]
  - Headache [Unknown]
  - Cough [Unknown]
  - Influenza [Unknown]
  - Pleural effusion [Not Recovered/Not Resolved]
